FAERS Safety Report 20077161 (Version 1)
Quarter: 2021Q4

REPORT INFORMATION
  Report Type: Report from Study
  Country: US (occurrence: US)
  Receive Date: 20211116
  Receipt Date: 20211116
  Transmission Date: 20220303
  Serious: No
  Sender: FDA-Public Use
  Company Number: US-TG THERAPEUTICS INC.-TGT002168

PATIENT

DRUGS (1)
  1. UMBRALISIB [Suspect]
     Active Substance: UMBRALISIB
     Indication: Product used for unknown indication

REACTIONS (1)
  - Fatigue [Unknown]

NARRATIVE: CASE EVENT DATE: 20210927
